FAERS Safety Report 13031957 (Version 1)
Quarter: 2016Q4

REPORT INFORMATION
  Report Type: Spontaneous
  Country: FR (occurrence: FR)
  Receive Date: 20161215
  Receipt Date: 20161215
  Transmission Date: 20170207
  Serious: Yes (Other)
  Sender: FDA-Public Use
  Company Number: FR-CELLTRION INC.-2016FR012954

PATIENT

DRUGS (1)
  1. INFLECTRA [Suspect]
     Active Substance: INFLIXIMAB-DYYB
     Indication: RHEUMATOID ARTHRITIS
     Dosage: 5 MG/KG, UNK
     Route: 041
     Dates: start: 20160629, end: 20160921

REACTIONS (12)
  - Poor quality sleep [Unknown]
  - Asthenia [Unknown]
  - Presyncope [Unknown]
  - Infection [Recovered/Resolved]
  - Hyperhidrosis [Unknown]
  - Drug ineffective [Not Recovered/Not Resolved]
  - Diarrhoea [Unknown]
  - Oral herpes [Recovered/Resolved]
  - Abdominal pain [Unknown]
  - Hidradenitis [Recovered/Resolved]
  - Abdominal distension [Unknown]
  - Folliculitis [Recovered/Resolved]

NARRATIVE: CASE EVENT DATE: 2016
